FAERS Safety Report 21233340 (Version 1)
Quarter: 2022Q3

REPORT INFORMATION
  Report Type: Spontaneous
  Country: US (occurrence: US)
  Receive Date: 20220819
  Receipt Date: 20220819
  Transmission Date: 20221026
  Serious: Yes (Other)
  Sender: FDA-Public Use
  Company Number: US-drreddys-SPO/USA/22/0153472

PATIENT
  Age: 17 Year

DRUGS (1)
  1. ACCUTANE [Suspect]
     Active Substance: ISOTRETINOIN
     Indication: Acne
     Dosage: RMA ISSUE DATE: 16 JUNE 2022 12:49:21 PM, 21 JULY 2022 12:39:01 PM

REACTIONS (2)
  - Mood swings [Unknown]
  - Suicidal ideation [Unknown]
